FAERS Safety Report 7677129-8 (Version None)
Quarter: 2011Q3

REPORT INFORMATION
  Report Type: 
  Country: None (occurrence: None)
  Receive Date: 20110808
  Receipt Date: 20110726
  Transmission Date: 20111222
  Serious: Yes (Death)
  Sender: FDA-Public Use
  Company Number: 1000022595

PATIENT
  Age: 97 Year
  Sex: Male

DRUGS (2)
  1. SEVERAL UNSPECIFIED CONCOMITANT DRUGS [Concomitant]
  2. ROFLUMILAST (ROFLUMILAST) (TABLETS) [Suspect]
     Indication: CHRONIC OBSTRUCTIVE PULMONARY DISEASE
     Dosage: ORAL
     Route: 048
     Dates: start: 20110101, end: 20110701

REACTIONS (3)
  - NAUSEA [None]
  - CARDIAC ARREST [None]
  - DECREASED APPETITE [None]
